FAERS Safety Report 7320799-4 (Version None)
Quarter: 2011Q1

REPORT INFORMATION
  Report Type: 
  Country: None (occurrence: None)
  Receive Date: 20110228
  Receipt Date: 20110217
  Transmission Date: 20110831
  Serious: Yes (Hospitalization)
  Sender: FDA-Public Use
  Company Number: JP-ROCHE-758890

PATIENT
  Sex: Female
  Weight: 47 kg

DRUGS (4)
  1. AZOSEMIDE [Concomitant]
     Route: 048
     Dates: start: 20050101
  2. WARFARIN POTASSIUM [Concomitant]
     Route: 048
     Dates: start: 20050101
  3. AMLODIPINE BESILATE [Concomitant]
     Route: 048
     Dates: start: 20050101
  4. TAMIFLU [Suspect]
     Indication: INFLUENZA
     Route: 048
     Dates: start: 20110124, end: 20110126

REACTIONS (2)
  - LIVER DISORDER [None]
  - BLOOD CREATINE PHOSPHOKINASE INCREASED [None]
